FAERS Safety Report 21222115 (Version 2)
Quarter: 2022Q3

REPORT INFORMATION
  Report Type: Spontaneous
  Country: US (occurrence: US)
  Receive Date: 20220817
  Receipt Date: 20220818
  Transmission Date: 20221027
  Serious: No
  Sender: FDA-Public Use
  Company Number: US-BEH-2022148475

PATIENT
  Sex: Female

DRUGS (1)
  1. HIZENTRA [Suspect]
     Active Substance: HUMAN IMMUNOGLOBULIN G
     Indication: Hypogammaglobulinaemia
     Dosage: 6 GRAM, QW
     Route: 058
     Dates: start: 20211129

REACTIONS (5)
  - Infusion site scar [Unknown]
  - Scar pain [Unknown]
  - Keloid scar [Unknown]
  - Infusion site haemorrhage [Unknown]
  - Infusion site swelling [Unknown]
